FAERS Safety Report 10690389 (Version 1)
Quarter: 2015Q1

REPORT INFORMATION
  Report Type: Spontaneous
  Country: US (occurrence: None)
  Receive Date: 20150102
  Receipt Date: 20150102
  Transmission Date: 20150720
  Serious: Yes (Hospitalization)
  Sender: FDA-Public Use
  Company Number: None

PATIENT
  Age: 77 Year
  Sex: Male
  Weight: 104.1 kg

DRUGS (2)
  1. SIMVASTATIN. [Suspect]
     Active Substance: SIMVASTATIN
     Indication: HYPERLIPIDAEMIA
     Route: 048
     Dates: start: 20100122, end: 20141010
  2. LISINOPRIL. [Suspect]
     Active Substance: LISINOPRIL
     Indication: HYPERTENSION
     Route: 048
     Dates: start: 20090906, end: 20141010

REACTIONS (6)
  - Hyperkalaemia [None]
  - Bradycardia [None]
  - Blood creatine phosphokinase increased [None]
  - Acute kidney injury [None]
  - Sinus node dysfunction [None]
  - Metabolic acidosis [None]

NARRATIVE: CASE EVENT DATE: 20141023
